FAERS Safety Report 9688769 (Version 1)
Quarter: 2013Q4

REPORT INFORMATION
  Report Type: Spontaneous
  Country: US (occurrence: US)
  Receive Date: 20131114
  Receipt Date: 20131114
  Transmission Date: 20140711
  Serious: Yes (Hospitalization)
  Sender: FDA-Public Use
  Company Number: US-PFIZER INC-2013315200

PATIENT
  Age: 89 Year
  Sex: Female
  Weight: 49 kg

DRUGS (3)
  1. ROBITUSSIN PEAK COLD MAXIMUM STRENGTH MULTI-SYMPTOM COLD [Suspect]
     Indication: NASOPHARYNGITIS
     Dosage: UNK, 4X/DAY
     Route: 048
     Dates: start: 20131028, end: 201310
  2. ROBITUSSIN PEAK COLD MAXIMUM STRENGTH MULTI-SYMPTOM COLD [Suspect]
     Indication: RHINORRHOEA
     Dosage: UNK, 4X/DAY
     Route: 048
     Dates: start: 20131103
  3. BUMEX [Concomitant]
     Indication: DIURETIC THERAPY
     Dosage: UNK
     Dates: end: 20131104

REACTIONS (5)
  - Pneumonia [Unknown]
  - Malaise [Unknown]
  - Drug ineffective [Unknown]
  - Diarrhoea [Not Recovered/Not Resolved]
  - Weight decreased [Unknown]
